FAERS Safety Report 17031927 (Version 2)
Quarter: 2020Q1

REPORT INFORMATION
  Report Type: Report from Study
  Country: US (occurrence: US)
  Receive Date: 20191114
  Receipt Date: 20200304
  Transmission Date: 20200409
  Serious: Yes (Hospitalization, Other)
  Sender: FDA-Public Use
  Company Number: US-BAUSCH-BL-2019-061393

PATIENT
  Age: 75 Year
  Sex: Male

DRUGS (2)
  1. APRISO [Suspect]
     Active Substance: MESALAMINE
     Indication: ABDOMINAL DISCOMFORT
     Route: 065
     Dates: start: 2018
  2. APRISO [Suspect]
     Active Substance: MESALAMINE
     Indication: DIARRHOEA

REACTIONS (3)
  - Vascular operation [Unknown]
  - Abdominal discomfort [Unknown]
  - Diarrhoea [Unknown]

NARRATIVE: CASE EVENT DATE: 201912
